FAERS Safety Report 26133421 (Version 2)
Quarter: 2025Q4

REPORT INFORMATION
  Report Type: Spontaneous
  Country: GB (occurrence: GB)
  Receive Date: 20251209
  Receipt Date: 20251224
  Transmission Date: 20260117
  Serious: Yes (Congenital Anomaly, Other)
  Sender: AUROBINDO
  Company Number: GB-MHRA-MED-202511261124168710-LSQNM

PATIENT
  Age: 37 Year
  Sex: Female
  Weight: 80 kg

DRUGS (18)
  1. QUETIAPINE [Suspect]
     Active Substance: QUETIAPINE
     Indication: Anxiety
     Dosage: 50 MG AT NIGHT
     Route: 065
     Dates: start: 20150120
  2. MIRTAZAPINE [Suspect]
     Active Substance: MIRTAZAPINE
     Indication: Depression
     Dosage: 45 MG AT NIGHT
     Route: 065
     Dates: start: 20220615
  3. DULOXETINE [Suspect]
     Active Substance: DULOXETINE
     Indication: Depression
     Dosage: 60 MG DAILY
     Route: 065
  4. POLYETHYLENE GLYCOLS [Suspect]
     Active Substance: POLYETHYLENE GLYCOLS
     Indication: Constipation
     Dosage: 1-2 SACHETS DAILY
     Route: 065
  5. BECLOMETHASONE DIPROPIONATE [Suspect]
     Active Substance: BECLOMETHASONE DIPROPIONATE
     Indication: Adverse drug reaction
     Dosage: 200 MICROGRAMS TWICE A DAY
     Route: 065
     Dates: start: 20240528
  6. CHOLECALCIFEROL [Suspect]
     Active Substance: CHOLECALCIFEROL
     Indication: Pregnancy
     Dosage: 400 UNITS ONCE DAILY
     Route: 065
     Dates: start: 20250320
  7. ENOXAPARIN SODIUM [Suspect]
     Active Substance: ENOXAPARIN SODIUM
     Indication: Pregnancy with advanced maternal age
     Dosage: 40 MG DAILY
     Route: 065
  8. LACTULOSE [Suspect]
     Active Substance: LACTULOSE
     Indication: Constipation
     Dosage: 2.5 ML TWICE A DAY
     Route: 065
     Dates: start: 20250409
  9. DISODIUM HYDROGEN CITRATE\SODIUM LAURYL SULFATE [Suspect]
     Active Substance: DISODIUM HYDROGEN CITRATE\SODIUM LAURYL SULFATE
     Indication: Constipation
     Dosage: 1 AS NEEDED RECTALLY
     Dates: start: 20250807
  10. OMEPRAZOLE [Suspect]
     Active Substance: OMEPRAZOLE
     Indication: Product used for unknown indication
     Dosage: 40 MG DAILY
     Route: 065
  11. SENNA [Suspect]
     Active Substance: SENNOSIDES
     Indication: Constipation
     Dosage: 15 MG AT NIGHT WHEN NEEDED
     Route: 065
     Dates: start: 20240731
  12. ALBUTEROL [Suspect]
     Active Substance: ALBUTEROL
     Indication: Adverse drug reaction
     Dosage: 2 PUFFS PRN
     Route: 065
     Dates: start: 20240528
  13. AMOXICILLIN TRIHYDRATE [Suspect]
     Active Substance: AMOXICILLIN
     Indication: Upper respiratory tract infection
     Dosage: 1 THREE TIMES A DAY FOR 1 WEEK
     Route: 065
     Dates: start: 20250925, end: 20251002
  14. CLOTRIMAZOLE [Suspect]
     Active Substance: CLOTRIMAZOLE
     Indication: Vulvovaginal candidiasis
     Dosage: 200 MG AT NIGHT FOR 6 NIGHTS
     Route: 065
     Dates: start: 20250804, end: 20250811
  15. FOLIC ACID [Concomitant]
     Active Substance: FOLIC ACID
     Indication: Vitamin supplementation
     Dosage: 400 MICROGRAM
     Route: 065
  16. ACETAMINOPHEN [Concomitant]
     Active Substance: ACETAMINOPHEN
     Indication: Product used for unknown indication
     Dosage: UNK (IN 1ST TRIMESTER ONLY)
     Route: 065
  17. NITROFURANTOIN [Concomitant]
     Active Substance: NITROFURANTOIN
     Indication: Product used for unknown indication
     Dosage: UNK (IN 1ST TRIMESTER ONLY)
     Route: 065
  18. AMOXICILLIN [Concomitant]
     Active Substance: AMOXICILLIN
     Indication: Product used for unknown indication
     Dosage: UNK (3RD TRIMESTER ONLY)
     Route: 065

REACTIONS (2)
  - Cleft palate [Not Recovered/Not Resolved]
  - Maternal exposure during pregnancy [Unknown]

NARRATIVE: CASE EVENT DATE: 20251101
